FAERS Safety Report 8470424-4 (Version None)
Quarter: 2012Q2

REPORT INFORMATION
  Report Type: 
  Country: None (occurrence: None)
  Receive Date: 20120627
  Receipt Date: 20120620
  Transmission Date: 20120825
  Serious: No
  Sender: FDA-Public Use
  Company Number: US-BAYER-2012-061429

PATIENT
  Sex: Female

DRUGS (2)
  1. CLIMARA PRO [Suspect]
  2. INSULIN [Concomitant]

REACTIONS (3)
  - RASH [None]
  - HOT FLUSH [None]
  - PRODUCT ADHESION ISSUE [None]
